FAERS Safety Report 10079773 (Version 2)
Quarter: 2014Q3

REPORT INFORMATION
  Report Type: Spontaneous
  Country: US (occurrence: US)
  Receive Date: 20140415
  Receipt Date: 20140707
  Transmission Date: 20150326
  Serious: Yes (Hospitalization)
  Sender: FDA-Public Use
  Company Number: US-GLAXOSMITHKLINE-A1069514A

PATIENT
  Age: 83 Year
  Sex: Female

DRUGS (1)
  1. SORIATANE [Suspect]
     Active Substance: ACITRETIN
     Indication: PSORIASIS
     Dosage: 25MG UNKNOWN
     Route: 065
     Dates: start: 20100524

REACTIONS (4)
  - Rehabilitation therapy [Unknown]
  - Joint injury [Unknown]
  - Fall [Unknown]
  - Surgery [Unknown]
